FAERS Safety Report 23769681 (Version 1)
Quarter: 2024Q2

REPORT INFORMATION
  Report Type: Spontaneous
  Country: CN (occurrence: CN)
  Receive Date: 20240422
  Receipt Date: 20240422
  Transmission Date: 20240716
  Serious: Yes (Life-Threatening)
  Sender: FDA-Public Use
  Company Number: CN-ELI_LILLY_AND_COMPANY-CN202404011316

PATIENT
  Age: 57 Year
  Sex: Female

DRUGS (3)
  1. ABEMACICLIB [Suspect]
     Active Substance: ABEMACICLIB
     Indication: Breast neoplasm
     Dosage: 150 MG, BID
     Route: 048
     Dates: start: 20240318
  2. FULVESTRANT [Suspect]
     Active Substance: FULVESTRANT
     Indication: Breast neoplasm
     Dosage: 0.25 G, SINGLE
     Route: 030
     Dates: start: 20240318, end: 20240318
  3. TRASTUZUMAB [Suspect]
     Active Substance: TRASTUZUMAB
     Indication: Breast neoplasm
     Dosage: 267 MG, SINGLE
     Route: 041
     Dates: start: 20240318, end: 20240318

REACTIONS (1)
  - Granulocyte count decreased [Recovering/Resolving]

NARRATIVE: CASE EVENT DATE: 20240409
